FAERS Safety Report 4379403-X (Version None)
Quarter: 2004Q2

REPORT INFORMATION
  Report Type: 
  Country: None (occurrence: None)
  Receive Date: 20040614
  Receipt Date: 20040604
  Transmission Date: 20050107
  Serious: Yes (Other)
  Sender: FDA-Public Use
  Company Number: 8157

PATIENT
  Sex: Female

DRUGS (7)
  1. METHOTREXATE [Suspect]
  2. PREMARIN [Suspect]
  3. AUGMENTIN [Suspect]
  4. CO-DYDRAMOL [Suspect]
  5. FLUOXETINE [Suspect]
  6. HUMIRA [Suspect]
  7. ROFECOXIB [Suspect]

REACTIONS (1)
  - RETINAL HAEMORRHAGE [None]
